FAERS Safety Report 15760599 (Version 3)
Quarter: 2019Q2

REPORT INFORMATION
  Report Type: Spontaneous
  Country: US (occurrence: US)
  Receive Date: 20181226
  Receipt Date: 20190502
  Transmission Date: 20190711
  Serious: No
  Sender: FDA-Public Use
  Company Number: US-PFIZER INC-2018527352

PATIENT
  Age: 54 Year
  Sex: Female

DRUGS (17)
  1. DOCETAXEL. [Suspect]
     Active Substance: DOCETAXEL
     Indication: BREAST CANCER FEMALE
     Dosage: 60-80 MG, CYCLIC (6 CYCLES, EVERY THREE WEEKS)
     Dates: start: 20110803, end: 20111228
  2. FISH OIL [Concomitant]
     Active Substance: FISH OIL
     Dosage: 2400 (UNIT UNSPECIFIED)/DAY
     Dates: start: 2008
  3. HERCEPTIN [Concomitant]
     Active Substance: TRASTUZUMAB
     Indication: CHEMOTHERAPY
     Dosage: UNK
  4. SELENIUM 200 [Concomitant]
     Dosage: UNK
     Dates: start: 2009, end: 20110531
  5. VITAMIN D3 [Concomitant]
     Active Substance: CHOLECALCIFEROL
     Dosage: 5000 (UNIT UNSPECIFIED)
     Dates: start: 2009, end: 20110531
  6. PARAPLATIN [Concomitant]
     Active Substance: CARBOPLATIN
     Indication: CHEMOTHERAPY
     Dosage: UNK
  7. TAXOTERE [Concomitant]
     Active Substance: DOCETAXEL
     Indication: CHEMOTHERAPY
     Dosage: UNK
  8. COQ10 [Concomitant]
     Active Substance: UBIDECARENONE
     Dosage: UNK
     Dates: start: 2009, end: 20110531
  9. B COMPLEX 50 [Concomitant]
     Dosage: UNK
     Dates: start: 2009, end: 20110531
  10. DOCETAXEL. [Suspect]
     Active Substance: DOCETAXEL
     Indication: CHEMOTHERAPY
     Dosage: UNK
     Dates: start: 20110803, end: 20111116
  11. DOCEFREZ [Suspect]
     Active Substance: DOCETAXEL ANHYDROUS
     Indication: CHEMOTHERAPY
     Dosage: UNK
     Dates: start: 20110803, end: 20111116
  12. GLUCOSAMINE CONDROTIN/MSM 3000/EA [Concomitant]
     Dosage: UNK
     Dates: start: 2009
  13. VITAMIN E [Concomitant]
     Active Substance: .ALPHA.-TOCOPHEROL
     Dosage: 400 (UNIT UNSPECIFIED)/DAY
     Dates: start: 2009
  14. OMEGA 3 6 9 [Concomitant]
     Active Substance: FISH OIL
     Dosage: UNK
     Dates: start: 2009, end: 20110531
  15. POTASSIUM CITRATE. [Concomitant]
     Active Substance: POTASSIUM CITRATE
     Dosage: UNK
     Dates: start: 2009, end: 20110531
  16. ZINC 100 [Concomitant]
     Dosage: UNK
     Dates: end: 20110531
  17. CALCIUM 2400 [Concomitant]
     Dosage: UNK
     Dates: start: 2009, end: 20110531

REACTIONS (5)
  - Hair texture abnormal [Not Recovered/Not Resolved]
  - Madarosis [Not Recovered/Not Resolved]
  - Hair colour changes [Not Recovered/Not Resolved]
  - Hair disorder [Not Recovered/Not Resolved]
  - Alopecia [Not Recovered/Not Resolved]

NARRATIVE: CASE EVENT DATE: 20110821
